FAERS Safety Report 25172548 (Version 2)
Quarter: 2025Q2

REPORT INFORMATION
  Report Type: Spontaneous
  Country: IT (occurrence: IT)
  Receive Date: 20250408
  Receipt Date: 20250423
  Transmission Date: 20250716
  Serious: Yes (Hospitalization)
  Sender: NOVARTIS
  Company Number: IT-MLMSERVICE-20250319-PI447371-00232-1

PATIENT
  Age: 34 Year
  Sex: Male

DRUGS (4)
  1. TACROLIMUS [Suspect]
     Active Substance: TACROLIMUS
     Indication: Immunosuppressant drug therapy
     Route: 065
  2. RITUXIMAB [Suspect]
     Active Substance: RITUXIMAB
     Indication: Immunosuppressant drug therapy
     Route: 065
  3. MYCOPHENOLIC ACID [Suspect]
     Active Substance: MYCOPHENOLIC ACID
     Indication: Immunosuppressant drug therapy
     Dosage: 750 MG, Q12H (750 MG, Q12H,14 DAYS BEFORE TRANSPLANTATION)
     Route: 065
  4. BASILIXIMAB [Suspect]
     Active Substance: BASILIXIMAB
     Indication: Immunosuppressant drug therapy
     Route: 065

REACTIONS (5)
  - Parvovirus B19 infection reactivation [Recovering/Resolving]
  - Acute kidney injury [Recovered/Resolved]
  - Tubulointerstitial nephritis [Recovering/Resolving]
  - Renal-limited thrombotic microangiopathy [Recovering/Resolving]
  - Thrombocytopenia [Recovered/Resolved]
